FAERS Safety Report 4351979-8 (Version None)
Quarter: 2004Q2

REPORT INFORMATION
  Report Type: 
  Country: None (occurrence: None)
  Receive Date: 20040429
  Receipt Date: 20040126
  Transmission Date: 20050107
  Serious: No
  Sender: FDA-Public Use
  Company Number: 2004-112713-NL

PATIENT
  Age: 48 Year
  Sex: Female
  Weight: 70.45 kg

DRUGS (7)
  1. NUVARING [Suspect]
     Indication: CONTRACEPTION
     Dosage: DF DAILY VAGINAL
     Route: 067
     Dates: start: 20030727, end: 20040114
  2. LITHIUM CARBONATE [Concomitant]
  3. SEROQUEL [Concomitant]
  4. SYNTHROID [Concomitant]
  5. CHONDROITIN [Concomitant]
  6. GLUCOSAMINE [Concomitant]
  7. MULTI-VITAMIN [Concomitant]

REACTIONS (1)
  - MENORRHAGIA [None]
